FAERS Safety Report 14031942 (Version 2)
Quarter: 2017Q4

REPORT INFORMATION
  Report Type: Spontaneous
  Country: JP (occurrence: JP)
  Receive Date: 20171002
  Receipt Date: 20171024
  Transmission Date: 20180321
  Serious: Yes (Other)
  Sender: FDA-Public Use
  Company Number: JP-FERRINGPH-2017FE04427

PATIENT

DRUGS (3)
  1. MEDROXYPROGESTERONE ACETATE. [Suspect]
     Active Substance: MEDROXYPROGESTERONE ACETATE
     Dosage: UNK
     Route: 065
  2. MENOTROPHIN [Suspect]
     Active Substance: MENOTROPINS
     Indication: IN VITRO FERTILISATION
     Route: 065
  3. MEDROXYPROGESTERONE ACETATE. [Suspect]
     Active Substance: MEDROXYPROGESTERONE ACETATE
     Indication: IN VITRO FERTILISATION
     Dosage: 600 MG, DAILY
     Route: 065

REACTIONS (1)
  - Endometrial cancer recurrent [Unknown]
